FAERS Safety Report 13457327 (Version 2)
Quarter: 2017Q2

REPORT INFORMATION
  Report Type: Spontaneous
  Country: US (occurrence: US)
  Receive Date: 20170419
  Receipt Date: 20170428
  Transmission Date: 20170830
  Serious: Yes (Other)
  Sender: FDA-Public Use
  Company Number: US-PURDUE-USA-2017-0138137

PATIENT
  Sex: Male

DRUGS (5)
  1. MS CONTIN [Suspect]
     Active Substance: MORPHINE SULFATE
     Indication: PAIN IN EXTREMITY
  2. METOPROLOL. [Concomitant]
     Active Substance: METOPROLOL
     Indication: HYPERTENSION
     Dosage: UNK TABLET, DAILY
     Route: 048
     Dates: start: 2000
  3. NORTRIPTYLINE [Concomitant]
     Active Substance: NORTRIPTYLINE
     Indication: HYPERTENSION
     Dosage: UNK TABLET, DAILY
     Route: 048
     Dates: start: 2000
  4. MS CONTIN [Suspect]
     Active Substance: MORPHINE SULFATE
     Indication: BACK PAIN
     Dosage: 60 MG, TID
     Route: 048
     Dates: start: 2004
  5. CLONIDINE. [Concomitant]
     Active Substance: CLONIDINE
     Indication: HYPERTENSION
     Dosage: UNK TABLET, DAILY
     Route: 048
     Dates: start: 2000

REACTIONS (8)
  - Loss of personal independence in daily activities [Unknown]
  - Pain [Unknown]
  - Inadequate analgesia [Unknown]
  - Hypertension [Unknown]
  - Wound [Unknown]
  - Cardiac disorder [Unknown]
  - Fall [Unknown]
  - Headache [Unknown]

NARRATIVE: CASE EVENT DATE: 2016
